FAERS Safety Report 5033594-6 (Version None)
Quarter: 2006Q2

REPORT INFORMATION
  Report Type: 
  Country: None (occurrence: None)
  Receive Date: 20060518
  Receipt Date: 20050406
  Transmission Date: 20061013
  Serious: Yes (Other)
  Sender: FDA-Public Use
  Company Number: 2005058000

PATIENT
  Sex: Female
  Weight: 122.4712 kg

DRUGS (10)
  1. DEPO-PROVERA [Suspect]
     Indication: HORMONE REPLACEMENT THERAPY
     Dates: start: 19800101, end: 19800101
  2. DEPO-PROVERA [Suspect]
     Indication: HORMONE REPLACEMENT THERAPY
     Dates: start: 19810101, end: 19810101
  3. CONJUGATED ESTROGENS [Suspect]
     Indication: HORMONE REPLACEMENT THERAPY
     Dates: start: 19760101, end: 20020101
  4. GABAPENTIN [Concomitant]
  5. CALCIUM (CALCIUM) [Concomitant]
  6. CITALOPRAM HYDROBROMIDE [Concomitant]
  7. ESOMEPRAZOLE (ESOMEPRAZOLE) [Concomitant]
  8. TRAMADOL HCL [Concomitant]
  9. METAXALONE [Concomitant]
  10. ALPRAZOLAM [Concomitant]

REACTIONS (1)
  - BREAST CANCER [None]
